FAERS Safety Report 18608738 (Version 11)
Quarter: 2022Q2

REPORT INFORMATION
  Report Type: Report from Study
  Country: IN (occurrence: IN)
  Receive Date: 20201213
  Receipt Date: 20220610
  Transmission Date: 20220720
  Serious: Yes (Death, Life-Threatening, Hospitalization)
  Sender: FDA-Public Use
  Company Number: NVSC2020IN310682

PATIENT
  Age: 66 Year
  Sex: Male
  Weight: 69.5 kg

DRUGS (11)
  1. CAPMATINIB [Suspect]
     Active Substance: CAPMATINIB
     Indication: Non-small cell lung cancer
     Dosage: 800 MG, BID
     Route: 048
     Dates: start: 20201013, end: 20201118
  2. PEMBROLIZUMAB [Suspect]
     Active Substance: PEMBROLIZUMAB
     Indication: Non-small cell lung cancer
     Dosage: 200 MG
     Route: 042
     Dates: start: 20201013
  3. A-Z [Concomitant]
     Indication: General physical condition
     Dosage: UNK
     Route: 065
     Dates: start: 20200919, end: 20201118
  4. MYOCOL [Concomitant]
     Indication: Prophylaxis
     Dosage: UNK
     Route: 065
     Dates: start: 20201118, end: 20201118
  5. ATRACURIUM [Concomitant]
     Active Substance: ATRACURIUM
     Indication: Anaesthesia
     Dosage: UNK
     Route: 065
     Dates: start: 20201118, end: 20201119
  6. ATRACURIUM [Concomitant]
     Active Substance: ATRACURIUM
     Indication: General physical condition
  7. INSULIN HUMAN [Concomitant]
     Active Substance: INSULIN HUMAN
     Indication: Product used for unknown indication
     Dosage: UNK
     Route: 065
     Dates: start: 20201118, end: 20201119
  8. SUS SCROFA CEREBRAL CORTEX [Concomitant]
     Active Substance: SUS SCROFA CEREBRAL CORTEX
     Indication: Cough
     Dosage: UNK
     Route: 065
     Dates: start: 20200919, end: 20201118
  9. MET XL [Concomitant]
     Indication: General physical condition
     Dosage: UNK
     Route: 065
     Dates: start: 20200923, end: 20201118
  10. PAN [Concomitant]
     Indication: Prophylaxis
     Dosage: UNK
     Route: 065
     Dates: start: 20201118, end: 20201119
  11. MIDAZ [Concomitant]
     Indication: Local anaesthesia
     Dosage: UNK
     Route: 065
     Dates: start: 20201118, end: 20201118

REACTIONS (1)
  - Pneumonitis [Fatal]

NARRATIVE: CASE EVENT DATE: 20201118
